FAERS Safety Report 9377942 (Version 1)
Quarter: 2013Q3

REPORT INFORMATION
  Report Type: Spontaneous
  Country: JP (occurrence: JP)
  Receive Date: 20130701
  Receipt Date: 20130701
  Transmission Date: 20140515
  Serious: Yes (Death, Hospitalization)
  Sender: FDA-Public Use
  Company Number: JP-PFIZER INC-2013175472

PATIENT
  Age: 88 Year
  Sex: Male

DRUGS (3)
  1. SOLU-MEDROL [Suspect]
     Indication: IDIOPATHIC PULMONARY FIBROSIS
     Dosage: 40 MG, 1X/DAY
     Route: 042
     Dates: start: 20130528, end: 20130603
  2. SOLU-MEDROL [Suspect]
     Dosage: 30 MG, 1X/DAY
     Route: 042
     Dates: start: 20130604, end: 20130607
  3. SOLU-MEDROL [Suspect]
     Dosage: 20 MG, 1X/DAY
     Dates: start: 20130608, end: 20130610

REACTIONS (2)
  - Depressed mood [Unknown]
  - Idiopathic pulmonary fibrosis [Fatal]
